FAERS Safety Report 7819332-X (Version None)
Quarter: 2011Q4

REPORT INFORMATION
  Report Type: 
  Country: None (occurrence: None)
  Receive Date: 20111018
  Receipt Date: 20110224
  Transmission Date: 20120403
  Serious: No
  Sender: FDA-Public Use
  Company Number: US-ASTRAZENECA-2010SE58390

PATIENT
  Age: 63 Year
  Sex: Female

DRUGS (2)
  1. SYMBICORT [Suspect]
     Indication: ASTHMA
     Dosage: 160/ 4.5 MCG TWO PUFFS BID
     Route: 055
  2. SYMBICORT [Suspect]
     Indication: BRONCHITIS CHRONIC
     Dosage: 160/ 4.5 MCG TWO PUFFS BID
     Route: 055

REACTIONS (6)
  - LIMB DISCOMFORT [None]
  - FIBROMYALGIA [None]
  - BRONCHITIS CHRONIC [None]
  - ASTHMA [None]
  - CHEST DISCOMFORT [None]
  - DRUG DOSE OMISSION [None]
